FAERS Safety Report 17070466 (Version 1)
Quarter: 2019Q4

REPORT INFORMATION
  Report Type: Spontaneous
  Country: US (occurrence: US)
  Receive Date: 20191025
  Receipt Date: 20191025
  Transmission Date: 20200122
  Serious: No
  Sender: FDA-Public Use
  Company Number: None

PATIENT
  Age: 61 Year
  Sex: Female

DRUGS (1)
  1. FORTEO [Suspect]
     Active Substance: TERIPARATIDE
     Indication: OSTEOPOROSIS
     Route: 058
     Dates: start: 201807

REACTIONS (7)
  - Dry mouth [None]
  - Arthralgia [None]
  - Blood calcium increased [None]
  - Tooth erosion [None]
  - Nausea [None]
  - Joint swelling [None]
  - Neck pain [None]

NARRATIVE: CASE EVENT DATE: 20191025
